FAERS Safety Report 5269204-2 (Version None)
Quarter: 2007Q1

REPORT INFORMATION
  Report Type: 
  Country: None (occurrence: None)
  Receive Date: 20070319
  Receipt Date: 20070309
  Transmission Date: 20070707
  Serious: Yes (Hospitalization, Other)
  Sender: FDA-Public Use
  Company Number: US-AMGEN-US214421

PATIENT
  Sex: Female

DRUGS (1)
  1. ARANESP [Suspect]
     Indication: DIALYSIS
     Route: 065
     Dates: start: 20040101

REACTIONS (2)
  - HAEMOGLOBIN DECREASED [None]
  - HOSPITALISATION [None]
